FAERS Safety Report 6916998-3 (Version None)
Quarter: 2010Q3

REPORT INFORMATION
  Report Type: 
  Country: None (occurrence: None)
  Receive Date: 20100810
  Receipt Date: 20100730
  Transmission Date: 20110219
  Serious: Yes (Hospitalization)
  Sender: FDA-Public Use
  Company Number: A0850021A

PATIENT
  Age: 51 Year
  Sex: Female
  Weight: 65.5 kg

DRUGS (11)
  1. AVANDIA [Suspect]
     Indication: DIABETES MELLITUS
     Dosage: 8MG PER DAY
     Route: 048
     Dates: start: 20050501, end: 20080101
  2. GLIPIZIDE [Concomitant]
  3. ASPIRIN [Concomitant]
  4. SPIRONOLACTONE [Concomitant]
  5. FUROSEMIDE [Concomitant]
  6. METOPROLOL [Concomitant]
  7. GEMFIBROZIL [Concomitant]
  8. SIMVASTATIN [Concomitant]
  9. PLAVIX [Concomitant]
  10. BENICAR [Concomitant]
  11. METFORMIN HCL [Concomitant]

REACTIONS (2)
  - CARDIAC FAILURE CONGESTIVE [None]
  - CORONARY ARTERY DISEASE [None]
